FAERS Safety Report 5761285-2 (Version None)
Quarter: 2008Q2

REPORT INFORMATION
  Report Type: 
  Country: None (occurrence: None)
  Receive Date: 20080606
  Receipt Date: 20080527
  Transmission Date: 20081010
  Serious: Yes (Other)
  Sender: FDA-Public Use
  Company Number: US-JNJFOC-20080303469

PATIENT
  Sex: Female
  Weight: 88.91 kg

DRUGS (15)
  1. ULTRAM [Suspect]
     Indication: OSTEOARTHRITIS
     Route: 048
  2. ULTRAM [Suspect]
     Indication: ARTHRITIS
     Route: 048
  3. ACETAMINOPHEN [Suspect]
     Route: 065
  4. ACETAMINOPHEN [Suspect]
     Indication: DRUG USE FOR UNKNOWN INDICATION
     Route: 065
  5. NEXIUM [Concomitant]
     Indication: ULCER
     Route: 048
  6. NEURONTIN [Concomitant]
     Route: 048
  7. NEURONTIN [Concomitant]
     Indication: NERVE INJURY
     Route: 048
  8. IBUROFEN [Concomitant]
     Indication: TENDONITIS
     Route: 048
  9. LODINE [Concomitant]
     Indication: TENDONITIS
     Route: 048
  10. CALCIUM [Concomitant]
     Indication: NUTRITIONAL SUPPORT
     Route: 048
  11. MULTI-VITAMIN [Concomitant]
     Indication: NUTRITIONAL SUPPORT
     Route: 048
  12. VICODIN ES [Concomitant]
     Indication: ARTHRITIS
     Route: 048
  13. CONCALATE [Concomitant]
  14. REGLAN [Concomitant]
  15. ALBUTEROL [Concomitant]

REACTIONS (6)
  - DRUG HYPERSENSITIVITY [None]
  - FLUSHING [None]
  - OEDEMA PERIPHERAL [None]
  - PRURITUS GENERALISED [None]
  - RASH MACULAR [None]
  - SWELLING FACE [None]
